FAERS Safety Report 17130348 (Version 4)
Quarter: 2023Q1

REPORT INFORMATION
  Report Type: Other
  Country: AU (occurrence: AU)
  Receive Date: 20191209
  Receipt Date: 20230209
  Transmission Date: 20230417
  Serious: No
  Sender: FDA-Public Use
  Company Number: AU-TOLMAR, INC.-19AU001054

PATIENT
  Age: 71 Year
  Sex: Male

DRUGS (1)
  1. ELIGARD [Suspect]
     Active Substance: LEUPROLIDE ACETATE
     Indication: Prostate cancer
     Dosage: 22.5 MILLIGRAM, Q 3 MONTH
     Dates: start: 20190807

REACTIONS (5)
  - Hot flush [Not Recovered/Not Resolved]
  - Fatigue [Unknown]
  - Arthralgia [Unknown]
  - Malaise [Unknown]
  - Night sweats [Unknown]

NARRATIVE: CASE EVENT DATE: 20190807
